FAERS Safety Report 23123903 (Version 6)
Quarter: 2025Q1

REPORT INFORMATION
  Report Type: Report from Study
  Country: CO (occurrence: CO)
  Receive Date: 20231030
  Receipt Date: 20250306
  Transmission Date: 20250409
  Serious: Yes (Hospitalization, Other)
  Sender: NOVARTIS
  Company Number: CO-002147023-NVSC2022CO101148

PATIENT
  Sex: Female
  Weight: 72 kg

DRUGS (14)
  1. KISQALI [Suspect]
     Active Substance: RIBOCICLIB
     Indication: Breast cancer metastatic
     Dosage: UNK UNK, QD
     Route: 048
  2. KISQALI [Suspect]
     Active Substance: RIBOCICLIB
     Indication: Hormone receptor positive HER2 negative breast cancer
     Dosage: 600 MG, QD
     Route: 048
     Dates: start: 20210903
  3. KISQALI [Suspect]
     Active Substance: RIBOCICLIB
     Dosage: 400 MG, QD
     Route: 048
     Dates: start: 202109
  4. KISQALI [Suspect]
     Active Substance: RIBOCICLIB
     Dosage: 3 DOSAGE FORM, QD
     Route: 048
  5. KISQALI [Suspect]
     Active Substance: RIBOCICLIB
     Route: 048
     Dates: end: 20231012
  6. KISQALI [Suspect]
     Active Substance: RIBOCICLIB
     Dosage: 2 DOSAGE FORM (400 MG), QD
     Route: 048
  7. FEMARA [Suspect]
     Active Substance: LETROZOLE
     Indication: Breast cancer
     Dosage: UNK UNK, QD
     Route: 048
  8. FEMARA [Suspect]
     Active Substance: LETROZOLE
     Route: 065
     Dates: start: 202109
  9. FEMARA [Suspect]
     Active Substance: LETROZOLE
     Dosage: 2.5 MG, QD
     Route: 048
     Dates: start: 20210903
  10. Letrozole hetero [Concomitant]
     Indication: Product used for unknown indication
     Route: 065
  11. CALCIUM [Concomitant]
     Active Substance: CALCIUM
     Indication: Product used for unknown indication
     Dosage: UNK, QMO
     Route: 065
  12. CALCIUM [Concomitant]
     Active Substance: CALCIUM
     Dosage: UNK, Q3MO
     Route: 065
  13. ACETAMINOPHEN [Concomitant]
     Active Substance: ACETAMINOPHEN
     Indication: Procedural headache
     Route: 065
  14. PREGABALIN [Concomitant]
     Active Substance: PREGABALIN
     Indication: Procedural headache
     Route: 065

REACTIONS (15)
  - Bacterial infection [Not Recovered/Not Resolved]
  - Renal disorder [Unknown]
  - Metastasis [Unknown]
  - Breast cancer recurrent [Unknown]
  - Kidney infection [Unknown]
  - Diarrhoea [Recovered/Resolved]
  - Discouragement [Unknown]
  - Body height decreased [Unknown]
  - Weight decreased [Recovered/Resolved]
  - Illness [Unknown]
  - Product dose omission in error [Unknown]
  - Malaise [Unknown]
  - Headache [Unknown]
  - Discomfort [Unknown]
  - Product availability issue [Unknown]
